FAERS Safety Report 9520680 (Version 2)
Quarter: 2013Q3

REPORT INFORMATION
  Report Type: Spontaneous
  Country: US (occurrence: US)
  Receive Date: 20130913
  Receipt Date: 20130916
  Transmission Date: 20140515
  Serious: Yes (Other)
  Sender: FDA-Public Use
  Company Number: US-JNJFOC-20130902481

PATIENT
  Age: 48 Year
  Sex: Female
  Weight: 60.33 kg

DRUGS (7)
  1. ZYRTEC [Suspect]
     Route: 048
  2. ZYRTEC [Suspect]
     Indication: MULTIPLE ALLERGIES
     Route: 048
     Dates: start: 20070901, end: 20130903
  3. AMITRIPTYLINE [Concomitant]
     Indication: ANXIETY
     Route: 065
  4. LEVOTHYROXINE [Concomitant]
     Indication: THYROID DISORDER
     Route: 065
  5. KLONOPIN [Concomitant]
     Indication: ANXIETY
     Route: 065
  6. LUNESTA [Concomitant]
     Indication: SLEEP DISORDER THERAPY
     Route: 065
  7. RESTORIL [Concomitant]
     Indication: SLEEP DISORDER THERAPY
     Route: 065

REACTIONS (8)
  - Abdominal distension [Not Recovered/Not Resolved]
  - Cystitis [Not Recovered/Not Resolved]
  - Urinary incontinence [Not Recovered/Not Resolved]
  - Ear pain [Not Recovered/Not Resolved]
  - Photosensitivity reaction [Not Recovered/Not Resolved]
  - Tremor [Not Recovered/Not Resolved]
  - Nausea [Not Recovered/Not Resolved]
  - Abdominal pain upper [Not Recovered/Not Resolved]
